FAERS Safety Report 8169409-7 (Version None)
Quarter: 2012Q1

REPORT INFORMATION
  Report Type: 
  Country: None (occurrence: None)
  Receive Date: 20120222
  Receipt Date: 20120213
  Transmission Date: 20120608
  Serious: Yes (Other)
  Sender: FDA-Public Use
  Company Number: 2012SP008236

PATIENT
  Sex: Female

DRUGS (6)
  1. RIBAVIRIN [Suspect]
     Indication: HEPATITIS C
     Dates: start: 20110824
  2. RIBAVIRIN [Suspect]
     Indication: HEPATITIS C
     Dates: start: 20111221
  3. VICTRELIS [Suspect]
     Indication: HEPATITIS C
     Dates: start: 20111221
  4. VICTRELIS [Suspect]
     Indication: HEPATITIS C
     Dates: start: 20110824
  5. PEG-INTRON [Suspect]
     Indication: HEPATITIS C
     Dates: start: 20110824
  6. PEG-INTRON [Suspect]
     Indication: HEPATITIS C
     Dates: start: 20111221

REACTIONS (12)
  - COUGH [None]
  - MUSCLE TWITCHING [None]
  - SENSORY LOSS [None]
  - PAIN [None]
  - RHINORRHOEA [None]
  - BACK PAIN [None]
  - INFECTION [None]
  - DRY MOUTH [None]
  - FALL [None]
  - DEHYDRATION [None]
  - CHAPPED LIPS [None]
  - INFLUENZA [None]
